FAERS Safety Report 20775363 (Version 1)
Quarter: 2022Q2

REPORT INFORMATION
  Report Type: Spontaneous
  Country: RS (occurrence: RS)
  Receive Date: 20220502
  Receipt Date: 20220502
  Transmission Date: 20220720
  Serious: Yes (Hospitalization, Other)
  Sender: FDA-Public Use
  Company Number: RS-PFIZER INC-202200595502

PATIENT
  Age: 37 Year
  Sex: Female

DRUGS (7)
  1. SULFASALAZINE [Suspect]
     Active Substance: SULFASALAZINE
     Indication: Ankylosing spondylitis
     Dosage: 2 G, 1X/DAY
     Route: 065
     Dates: start: 201510, end: 201912
  2. SULFASALAZINE [Suspect]
     Active Substance: SULFASALAZINE
     Dosage: UNK
     Route: 065
     Dates: start: 202010
  3. SIMPONI [Suspect]
     Active Substance: GOLIMUMAB
     Indication: Ankylosing spondylitis
     Dosage: 50 MG, MONTHLY
     Route: 058
     Dates: start: 201812
  4. SIMPONI [Suspect]
     Active Substance: GOLIMUMAB
     Dosage: UNK
     Dates: start: 20201207
  5. COVID-19 VACCINE NOS [Suspect]
     Active Substance: COVID-19 VACCINE NOS
     Indication: COVID-19 immunisation
     Dosage: DOSE NUMBER UNKNOWN, SINGLE
     Route: 065
  6. COVID-19 VACCINE NOS [Suspect]
     Active Substance: COVID-19 VACCINE NOS
     Indication: COVID-19 immunisation
     Dosage: DOSE 1, SINGLE
     Dates: start: 202102
  7. COVID-19 VACCINE NOS [Suspect]
     Active Substance: COVID-19 VACCINE NOS
     Dosage: DOSE 2, SINGLE
     Dates: start: 202102

REACTIONS (5)
  - COVID-19 pneumonia [Unknown]
  - Autoimmune haemolytic anaemia [Unknown]
  - Leukocytosis [Unknown]
  - Neutrophilia [Unknown]
  - Streptococcus test positive [Unknown]

NARRATIVE: CASE EVENT DATE: 20210301
